FAERS Safety Report 5934335-8 (Version None)
Quarter: 2008Q4

REPORT INFORMATION
  Report Type: 
  Country: None (occurrence: None)
  Receive Date: 20081029
  Receipt Date: 20081021
  Transmission Date: 20090506
  Serious: Yes (Other)
  Sender: FDA-Public Use
  Company Number: PHEH2007US03273

PATIENT
  Sex: Male

DRUGS (6)
  1. ZOMETA [Suspect]
  2. TOPROL-XL [Concomitant]
  3. BENICAR [Concomitant]
  4. LUPRON [Concomitant]
  5. CLINDAMYCIN HCL [Concomitant]
  6. VICOPROFEN [Concomitant]

REACTIONS (17)
  - ANXIETY [None]
  - BONE DISORDER [None]
  - BONE OPERATION [None]
  - DECREASED INTEREST [None]
  - GENERAL PHYSICAL HEALTH DETERIORATION [None]
  - GINGIVITIS [None]
  - GLOSSODYNIA [None]
  - IMPAIRED HEALING [None]
  - ORAL MUCOSAL ERYTHEMA [None]
  - OSTEONECROSIS [None]
  - PAIN [None]
  - PAIN IN JAW [None]
  - PERIODONTAL DISEASE [None]
  - PRIMARY SEQUESTRUM [None]
  - TONGUE INJURY [None]
  - TONGUE ULCERATION [None]
  - TOOTHACHE [None]
